FAERS Safety Report 4993158-7 (Version None)
Quarter: 2006Q1

REPORT INFORMATION
  Report Type: 
  Country: None (occurrence: None)
  Receive Date: 20060313
  Receipt Date: 20051116
  Transmission Date: 20060701
  Serious: No
  Sender: FDA-Public Use
  Company Number: 2005-BP-19042BP

PATIENT

DRUGS (2)
  1. SPIRIVA [Suspect]
     Dosage: 18 MCG (18 MCG,QD),IH
  2. SPIRIVA [Suspect]
     Dosage: SEE TEXT (18 MCG,3-6 X / WK),IH

REACTIONS (2)
  - ASTHENIA [None]
  - HEADACHE [None]
